FAERS Safety Report 9908576 (Version 2)
Quarter: 2015Q4

REPORT INFORMATION
  Report Type: Report from Study
  Country: US (occurrence: US)
  Receive Date: 20140219
  Receipt Date: 20151202
  Transmission Date: 20160305
  Serious: Yes (Death)
  Sender: FDA-Public Use
  Company Number: US-ROCHE-1346494

PATIENT
  Sex: Female

DRUGS (24)
  1. AVASTIN [Suspect]
     Active Substance: BEVACIZUMAB
     Dosage: OS
     Route: 065
     Dates: start: 20110502
  2. AVASTIN [Suspect]
     Active Substance: BEVACIZUMAB
     Indication: AGE-RELATED MACULAR DEGENERATION
     Dosage: OS
     Route: 065
     Dates: start: 20100304
  3. ZYMAR [Concomitant]
     Active Substance: GATIFLOXACIN
     Dosage: 1 GTT QID OS X 3 DAYS
     Route: 065
  4. PRESERVISION AREDS [Concomitant]
     Active Substance: MINERALS\VITAMINS
  5. AK-DILATE [Concomitant]
     Route: 065
  6. CILOXAN [Concomitant]
     Active Substance: CIPROFLOXACIN HYDROCHLORIDE
     Dosage: 1 GTT QID OS X 3 DAYS
     Route: 065
  7. AVASTIN [Suspect]
     Active Substance: BEVACIZUMAB
     Dosage: OS
     Route: 065
     Dates: start: 20100930
  8. MYDRIACYL [Concomitant]
     Active Substance: TROPICAMIDE
     Route: 065
  9. AVASTIN [Suspect]
     Active Substance: BEVACIZUMAB
     Indication: CHOROIDAL NEOVASCULARISATION
     Dosage: OS
     Route: 065
     Dates: start: 20100408
  10. AVASTIN [Suspect]
     Active Substance: BEVACIZUMAB
     Dosage: OS
     Route: 065
     Dates: start: 20100614
  11. AVASTIN [Suspect]
     Active Substance: BEVACIZUMAB
     Dosage: OS
     Route: 065
     Dates: start: 20110210
  12. AVASTIN [Suspect]
     Active Substance: BEVACIZUMAB
     Dosage: OS
     Route: 065
     Dates: start: 20110627
  13. AVASTIN [Suspect]
     Active Substance: BEVACIZUMAB
     Dosage: OS
     Route: 065
     Dates: start: 20101025
  14. AVASTIN [Suspect]
     Active Substance: BEVACIZUMAB
     Dosage: OS
     Route: 065
     Dates: start: 20110328
  15. AVASTIN [Suspect]
     Active Substance: BEVACIZUMAB
     Dosage: OS
     Route: 065
     Dates: start: 20111223
  16. ATENOLOL. [Concomitant]
     Active Substance: ATENOLOL
     Route: 048
  17. AVAPRO [Concomitant]
     Active Substance: IRBESARTAN
  18. LASIX [Concomitant]
     Active Substance: FUROSEMIDE
     Route: 048
  19. AVASTIN [Suspect]
     Active Substance: BEVACIZUMAB
     Dosage: OS
     Route: 065
     Dates: start: 20100510
  20. AVASTIN [Suspect]
     Active Substance: BEVACIZUMAB
     Dosage: OS
     Route: 065
     Dates: start: 20100726
  21. AVASTIN [Suspect]
     Active Substance: BEVACIZUMAB
     Dosage: OS
     Route: 065
     Dates: start: 20100902
  22. VITAMIN C [Concomitant]
     Active Substance: ASCORBIC ACID
     Route: 065
  23. ASPIRIN. [Concomitant]
     Active Substance: ASPIRIN
     Route: 048
  24. LIDOCAINE. [Concomitant]
     Active Substance: LIDOCAINE

REACTIONS (7)
  - Retinal depigmentation [Unknown]
  - Choroidal neovascularisation [Unknown]
  - Death [Fatal]
  - Vitreous detachment [Unknown]
  - Macular scar [Unknown]
  - Off label use [Unknown]
  - Dry age-related macular degeneration [Unknown]

NARRATIVE: CASE EVENT DATE: 2012
